FAERS Safety Report 13611898 (Version 1)
Quarter: 2017Q2

REPORT INFORMATION
  Report Type: Spontaneous
  Country: FR (occurrence: FR)
  Receive Date: 20170605
  Receipt Date: 20170605
  Transmission Date: 20170830
  Serious: Yes (Hospitalization)
  Sender: FDA-Public Use
  Company Number: FR-ROCHE-1943205

PATIENT
  Age: 85 Year
  Sex: Female

DRUGS (11)
  1. XANAX [Concomitant]
     Active Substance: ALPRAZOLAM
  2. SOTALOL. [Concomitant]
     Active Substance: SOTALOL
  3. EUPANTOL [Concomitant]
     Active Substance: PANTOPRAZOLE SODIUM
  4. LEVEMIR [Concomitant]
     Active Substance: INSULIN DETEMIR
  5. ROCEPHINE [Suspect]
     Active Substance: CEFTRIAXONE SODIUM
     Indication: OSTEITIS
     Route: 042
     Dates: start: 20170422, end: 20170423
  6. NEOMERCAZOLE [Concomitant]
     Active Substance: CARBIMAZOLE
  7. AUGMENTIN [Interacting]
     Active Substance: AMOXICILLIN\CLAVULANATE POTASSIUM
     Indication: OSTEITIS
     Dosage: ONGOING
     Route: 048
     Dates: start: 20170424
  8. TEMESTA (FRANCE) [Concomitant]
     Active Substance: LORAZEPAM
  9. PAROXETINE. [Concomitant]
     Active Substance: PAROXETINE
  10. AMLOR [Concomitant]
     Active Substance: AMLODIPINE BESYLATE
  11. COUMADIN [Interacting]
     Active Substance: WARFARIN SODIUM
     Indication: ATRIAL FIBRILLATION
     Dosage: LONG-TERM TREATMENT
     Route: 048
     Dates: end: 20170428

REACTIONS (3)
  - Anticoagulation drug level above therapeutic [Recovered/Resolved]
  - Haemorrhagic anaemia [Recovered/Resolved]
  - Drug interaction [Unknown]

NARRATIVE: CASE EVENT DATE: 20170428
